FAERS Safety Report 21810799 (Version 1)
Quarter: 2023Q1

REPORT INFORMATION
  Report Type: Report from Study
  Country: US (occurrence: US)
  Receive Date: 20230103
  Receipt Date: 20230103
  Transmission Date: 20230417
  Serious: Yes (Hospitalization, Other)
  Sender: FDA-Public Use
  Company Number: US-GILEAD-2022-0611311

PATIENT
  Age: 7 Year
  Sex: Female
  Weight: 21.3 kg

DRUGS (3)
  1. AMBRISENTAN [Suspect]
     Active Substance: AMBRISENTAN
     Indication: Product used for unknown indication
     Route: 065
  2. REMODULIN [Suspect]
     Active Substance: TREPROSTINIL
     Indication: Pulmonary arterial hypertension
     Dosage: 0.013 UG/KG
     Route: 058
     Dates: start: 20221207
  3. TADALAFIL [Concomitant]
     Active Substance: TADALAFIL

REACTIONS (6)
  - Epistaxis [Unknown]
  - Flushing [Unknown]
  - Nausea [Unknown]
  - Infusion site pain [Unknown]
  - Depressed mood [Unknown]
  - Device failure [Unknown]

NARRATIVE: CASE EVENT DATE: 20221207
